FAERS Safety Report 8585679 (Version 6)
Quarter: 2014Q1

REPORT INFORMATION
  Report Type: Spontaneous
  Country: US (occurrence: US)
  Receive Date: 20120530
  Receipt Date: 20140205
  Transmission Date: 20141002
  Serious: Yes (Other)
  Sender: FDA-Public Use
  Company Number: US-GLAXOSMITHKLINE-A0972199A

PATIENT
  Age: 55 Year
  Sex: Female
  Weight: 51.4 kg

DRUGS (3)
  1. FLOLAN [Suspect]
     Indication: COR PULMONALE CHRONIC
     Dosage: 19NGKM CONTINUOUS
     Route: 042
     Dates: start: 19990106
  2. VELETRI [Suspect]
     Indication: COR PULMONALE CHRONIC
     Route: 042
     Dates: start: 20130703
  3. REVATIO [Concomitant]
     Dosage: 20MG THREE TIMES PER DAY

REACTIONS (7)
  - Device related infection [Recovered/Resolved]
  - Catheter site infection [Unknown]
  - Diarrhoea [Recovered/Resolved]
  - Pain in jaw [Recovered/Resolved]
  - Headache [Recovered/Resolved]
  - Nasopharyngitis [Recovered/Resolved]
  - Pain in extremity [Recovered/Resolved]
